FAERS Safety Report 16074547 (Version 1)
Quarter: 2019Q1

REPORT INFORMATION
  Report Type: Spontaneous
  Country: US (occurrence: US)
  Receive Date: 20190314
  Receipt Date: 20190314
  Transmission Date: 20190418
  Serious: No
  Sender: FDA-Public Use
  Company Number: US-TEVA-2019-US-1014187

PATIENT
  Sex: Female

DRUGS (1)
  1. COPAXONE [Suspect]
     Active Substance: GLATIRAMER ACETATE
     Dosage: FORM STRENGTH: UNKNOWN
     Route: 065

REACTIONS (7)
  - Injection site haemorrhage [Unknown]
  - Gait disturbance [Unknown]
  - Pain in extremity [Unknown]
  - Muscle twitching [Unknown]
  - Injection site pain [Unknown]
  - Pain [Unknown]
  - Wrong technique in product usage process [Unknown]
